FAERS Safety Report 14875998 (Version 1)
Quarter: 2018Q2

REPORT INFORMATION
  Report Type: Spontaneous
  Country: US (occurrence: US)
  Receive Date: 20180510
  Receipt Date: 20180510
  Transmission Date: 20180711
  Serious: Yes (Other)
  Sender: FDA-Public Use
  Company Number: US-TEVA-2018-US-889576

PATIENT
  Sex: Male
  Weight: 63.5 kg

DRUGS (9)
  1. QNASL [Suspect]
     Active Substance: BECLOMETHASONE DIPROPIONATE
     Route: 045
  2. DARIFENACIN. [Concomitant]
     Active Substance: DARIFENACIN
  3. VALIUM [Concomitant]
     Active Substance: DIAZEPAM
  4. PACERONE [Suspect]
     Active Substance: AMIODARONE HYDROCHLORIDE
     Indication: HEART RATE IRREGULAR
     Dosage: 200 MILLIGRAM DAILY;
     Route: 048
     Dates: start: 2016, end: 2018
  5. ELIQUIS [Concomitant]
     Active Substance: APIXABAN
  6. PRAVASTATIN. [Concomitant]
     Active Substance: PRAVASTATIN
  7. SINGULAIR [Concomitant]
     Active Substance: MONTELUKAST SODIUM
  8. METOPROLOL. [Concomitant]
     Active Substance: METOPROLOL
  9. ASMANEX [Concomitant]
     Active Substance: MOMETASONE FUROATE

REACTIONS (7)
  - Sleep apnoea syndrome [Unknown]
  - Dyspnoea [Unknown]
  - Swelling [Unknown]
  - Ageusia [Not Recovered/Not Resolved]
  - Alopecia [Unknown]
  - Anosmia [Not Recovered/Not Resolved]
  - Insomnia [Unknown]
